FAERS Safety Report 20881716 (Version 1)
Quarter: 2022Q2

REPORT INFORMATION
  Report Type: Spontaneous
  Country: FR (occurrence: FR)
  Receive Date: 20220527
  Receipt Date: 20220527
  Transmission Date: 20220721
  Serious: Yes (Death)
  Sender: FDA-Public Use
  Company Number: None

PATIENT
  Age: 75 Year
  Sex: Male
  Weight: 90 kg

DRUGS (5)
  1. CLARITHROMYCIN [Suspect]
     Active Substance: CLARITHROMYCIN
     Indication: Infection
     Route: 048
     Dates: start: 202204, end: 20220418
  2. ELIQUIS [Suspect]
     Active Substance: APIXABAN
     Indication: Atrial fibrillation
     Dosage: UNIT DOSE: 2 DF, FREQUENCY TIME : 1 DAY, STRENGTH: 5 MG
     Route: 048
     Dates: end: 20220418
  3. LERCANIDIPINE HYDROCHLORIDE [Suspect]
     Active Substance: LERCANIDIPINE HYDROCHLORIDE
     Indication: Hypertension
     Dosage: SCORED FILM-COATED TABLET, UNIT DOSE: 1 DF, STRENGTH: 10 MG, FREQUENCY TIME : 1 DAY
     Route: 048
     Dates: end: 20220418
  4. BISOPROLOL [Suspect]
     Active Substance: BISOPROLOL
     Indication: Hypertension
     Dosage: SCORED FILM-COATED TABLET, STRENGTH: 2.5 MG, UNIT DOSE: 1 DF, FREQUENCY TIME : 1 DAY
     Route: 048
     Dates: end: 20220418
  5. EZETIMIBE\ROSUVASTATIN [Suspect]
     Active Substance: EZETIMIBE\ROSUVASTATIN
     Indication: Dyslipidaemia
     Dosage: UNIT DOSE: 1 DF, STRENGTH:  10 MG/10 MG , FREQUENCY TIME : 1 DAY
     Route: 048
     Dates: end: 20220418

REACTIONS (2)
  - Cardio-respiratory arrest [Fatal]
  - Torsade de pointes [Fatal]

NARRATIVE: CASE EVENT DATE: 20220418
